FAERS Safety Report 7511808-8 (Version None)
Quarter: 2011Q2

REPORT INFORMATION
  Report Type: 
  Country: None (occurrence: None)
  Receive Date: 20110531
  Receipt Date: 20110426
  Transmission Date: 20111010
  Serious: No
  Sender: FDA-Public Use
  Company Number: US-JNJFOC-20110411368

PATIENT
  Sex: Male
  Weight: 79.38 kg

DRUGS (2)
  1. INVEGA [Suspect]
     Indication: BIPOLAR DISORDER
     Route: 048
     Dates: start: 20080101, end: 20100401
  2. INVEGA [Suspect]
     Route: 048
     Dates: start: 20100401, end: 20110201

REACTIONS (1)
  - ADVERSE DRUG REACTION [None]
